FAERS Safety Report 9403466 (Version 1)
Quarter: 2013Q3

REPORT INFORMATION
  Report Type: Spontaneous
  Country: CN (occurrence: CN)
  Receive Date: 20130716
  Receipt Date: 20130716
  Transmission Date: 20140515
  Serious: Yes (Other)
  Sender: FDA-Public Use
  Company Number: CN-PFIZER INC-2013200544

PATIENT
  Age: 34 Year
  Sex: Male
  Weight: 78 kg

DRUGS (1)
  1. VIAGRA [Suspect]
     Indication: SEXUAL DYSFUNCTION
     Dosage: 0.1 G, 1X/DAY
     Route: 048
     Dates: start: 20121219, end: 201212

REACTIONS (2)
  - Cardiac discomfort [Recovering/Resolving]
  - Dizziness [Recovering/Resolving]
